FAERS Safety Report 20199543 (Version 1)
Quarter: 2021Q4

REPORT INFORMATION
  Report Type: Spontaneous
  Country: US (occurrence: US)
  Receive Date: 20211217
  Receipt Date: 20211217
  Transmission Date: 20220303
  Serious: No
  Sender: FDA-Public Use
  Company Number: US-PACIRA-2021000305

PATIENT
  Age: 40 Year
  Sex: Female

DRUGS (2)
  1. EXPAREL [Suspect]
     Active Substance: BUPIVACAINE
     Dosage: 40 ML EXPANDED WITH 50 MG OF BUPIVACAINE HCL FOR A TOTAL VOLUME OF 60 ML
     Route: 065
  2. BUPIVACAINE HYDROCHLORIDE [Suspect]
     Active Substance: BUPIVACAINE HYDROCHLORIDE
     Dosage: 50 MG WITH 40 ML OF EXPAREL EXPANDED FOR A TOTAL VOLUME OF 60 ML.
     Route: 065

REACTIONS (3)
  - Product use issue [Recovered/Resolved]
  - Off label use [Recovered/Resolved]
  - No adverse event [Unknown]
